FAERS Safety Report 5960373-5 (Version None)
Quarter: 2008Q4

REPORT INFORMATION
  Report Type: 
  Country: None (occurrence: None)
  Receive Date: 20081118
  Receipt Date: 20081031
  Transmission Date: 20090506
  Serious: Yes (Hospitalization)
  Sender: FDA-Public Use
  Company Number: ENT 2008-0178

PATIENT
  Age: 74 Year
  Sex: Male

DRUGS (9)
  1. COMTAN [Suspect]
     Dosage: 200 MG ORAL; 400 MILLICURIE(S) (200 MILLICURIE(S), 2 IN 1 D) ORAL
     Route: 048
     Dates: start: 20080617, end: 20080619
  2. COMTAN [Suspect]
     Dosage: 200 MG ORAL; 400 MILLICURIE(S) (200 MILLICURIE(S), 2 IN 1 D) ORAL
     Route: 048
     Dates: start: 20080612
  3. INDAPAMIDE [Concomitant]
  4. MADOPAR [Concomitant]
  5. CORDARONE [Concomitant]
  6. CALDINE [Concomitant]
  7. PREVISCAN [Concomitant]
  8. BISOPROLOL FUMARATE [Concomitant]
  9. TAHOR [Concomitant]

REACTIONS (8)
  - ASPARTATE AMINOTRANSFERASE INCREASED [None]
  - ATRIAL FIBRILLATION [None]
  - BLADDER DISTENSION [None]
  - CREATININE RENAL CLEARANCE DECREASED [None]
  - FALL [None]
  - HALLUCINATION [None]
  - POLYURIA [None]
  - TREMOR [None]
